FAERS Safety Report 19266752 (Version 1)
Quarter: 2021Q2

REPORT INFORMATION
  Report Type: Spontaneous
  Country: US (occurrence: US)
  Receive Date: 20210517
  Receipt Date: 20210517
  Transmission Date: 20210717
  Serious: No
  Sender: FDA-Public Use
  Company Number: US-ALLERGAN-2117691US

PATIENT
  Sex: Female

DRUGS (3)
  1. OZURDEX [Suspect]
     Active Substance: DEXAMETHASONE
     Indication: KERATITIS
  2. OZURDEX [Suspect]
     Active Substance: DEXAMETHASONE
     Indication: RETINAL VASCULITIS
     Dosage: 0.7 MG, SINGLE
     Route: 031
     Dates: start: 20210503, end: 20210503
  3. OZURDEX [Suspect]
     Active Substance: DEXAMETHASONE
     Indication: UVEITIS

REACTIONS (2)
  - Off label use [Unknown]
  - Device malfunction [Unknown]
